FAERS Safety Report 15417518 (Version 1)
Quarter: 2018Q3

REPORT INFORMATION
  Report Type: Spontaneous
  Country: US (occurrence: US)
  Receive Date: 20180917
  Receipt Date: 20180917
  Transmission Date: 20181021
  Serious: Yes (Life-Threatening, Hospitalization)
  Sender: FDA-Public Use
  Company Number: None

PATIENT
  Age: 46 Year
  Sex: Male
  Weight: 91.13 kg

DRUGS (2)
  1. DASATINIB. [Suspect]
     Active Substance: DASATINIB
     Indication: LEUKAEMIA
     Route: 048
     Dates: start: 20180517
  2. CYTARABINE. [Suspect]
     Active Substance: CYTARABINE
     Indication: LEUKAEMIA
     Route: 050
     Dates: start: 20180511

REACTIONS (5)
  - Neutropenia [None]
  - Acute kidney injury [None]
  - Pyrexia [None]
  - Leukopenia [None]
  - Shock [None]

NARRATIVE: CASE EVENT DATE: 20180802
